FAERS Safety Report 9591134 (Version 1)
Quarter: 2013Q4

REPORT INFORMATION
  Report Type: Spontaneous
  Country: US (occurrence: US)
  Receive Date: 20131003
  Receipt Date: 20131003
  Transmission Date: 20140711
  Serious: No
  Sender: FDA-Public Use
  Company Number: US-AMGEN-USASP2012075498

PATIENT
  Sex: Male

DRUGS (14)
  1. ENBREL [Suspect]
     Indication: PRODUCT USED FOR UNKNOWN INDICATION
     Dosage: 50 MG, QWK
     Route: 058
  2. PLENDIL [Concomitant]
     Dosage: 2.5 MG, UNK
  3. FOLIC ACID [Concomitant]
     Dosage: 1 MG, UNK
  4. METOPROLOL [Concomitant]
     Dosage: 100 MG, UNK
  5. PREDNISOLONE [Concomitant]
     Dosage: 5 MG, UNK
  6. ENALAPRIL [Concomitant]
     Dosage: 10 MG, UNK
  7. JANUVIA [Concomitant]
     Dosage: 25 MG, UNK
  8. COREG [Concomitant]
     Dosage: 12.5 MG, UNK
  9. CRESTOR [Concomitant]
     Dosage: 5 MG, UNK
  10. MAGNESIUM [Concomitant]
     Dosage: 200 MG, UNK
  11. DEXILANT [Concomitant]
     Dosage: 30 MG, UNK
  12. MULTIVITAMIN                       /00097801/ [Concomitant]
     Dosage: UNK
  13. ASPIRIN FREE BAYER SELECT HEAD + CHEST COLD [Concomitant]
     Dosage: 325 MG, UNK
  14. PLAVIX [Concomitant]
     Dosage: 75 MG, UNK

REACTIONS (1)
  - Local swelling [Unknown]
